FAERS Safety Report 4342169-3 (Version None)
Quarter: 2004Q1

REPORT INFORMATION
  Report Type: 
  Country: None (occurrence: None)
  Receive Date: 20040329
  Receipt Date: 20031218
  Transmission Date: 20041129
  Serious: No
  Sender: FDA-Public Use
  Company Number: USA031255029

PATIENT
  Age: 12 Year
  Sex: Male
  Weight: 37 kg

DRUGS (2)
  1. STRATTERA [Suspect]
     Indication: ATTENTION DEFICIT/HYPERACTIVITY DISORDER
     Dosage: 25 MG/DAY
  2. RITALIN LA [Concomitant]

REACTIONS (4)
  - CHEST PAIN [None]
  - COLD SWEAT [None]
  - DYSPEPSIA [None]
  - HYPERHIDROSIS [None]
